FAERS Safety Report 19792752 (Version 2)
Quarter: 2021Q3

REPORT INFORMATION
  Report Type: Report from Study
  Country: CO (occurrence: CO)
  Receive Date: 20210906
  Receipt Date: 20210917
  Transmission Date: 20211014
  Serious: Yes (Other)
  Sender: FDA-Public Use
  Company Number: CO-SA-2021SA290985

PATIENT
  Age: 58 Year
  Sex: Female

DRUGS (3)
  1. DIPIRONE [Concomitant]
     Active Substance: METAMIZOLE SODIUM
  2. FUROSEMIDE. [Concomitant]
     Active Substance: FUROSEMIDE
  3. DUPILUMAB [Suspect]
     Active Substance: DUPILUMAB
     Indication: ASTHMA
     Dosage: 200 MG, QOW
     Route: 058
     Dates: start: 20200225

REACTIONS (4)
  - Myocardial infarction [Recovering/Resolving]
  - Hypertension [Recovering/Resolving]
  - Renal pain [Unknown]
  - Arrhythmia [Recovering/Resolving]

NARRATIVE: CASE EVENT DATE: 2021
